FAERS Safety Report 13289380 (Version 3)
Quarter: 2018Q4

REPORT INFORMATION
  Report Type: Spontaneous
  Country: US (occurrence: US)
  Receive Date: 20170302
  Receipt Date: 20181026
  Transmission Date: 20190204
  Serious: Yes (Other)
  Sender: FDA-Public Use
  Company Number: US-SA-2017SA031883

PATIENT
  Age: 46 Year
  Sex: Female

DRUGS (2)
  1. FABRAZYME [Suspect]
     Active Substance: AGALSIDASE BETA
     Dosage: UNK UNK,UNK
     Route: 041
     Dates: start: 2015
  2. FABRAZYME [Suspect]
     Active Substance: AGALSIDASE BETA
     Indication: FABRY^S DISEASE
     Dosage: UNK UNK,UNK
     Route: 041

REACTIONS (7)
  - Sinusitis fungal [Unknown]
  - Feeling abnormal [Not Recovered/Not Resolved]
  - Sinusitis [Not Recovered/Not Resolved]
  - Urinary tract infection [Unknown]
  - Staphylococcal infection [Unknown]
  - Flank pain [Unknown]
  - Fatigue [Not Recovered/Not Resolved]
